FAERS Safety Report 20300315 (Version 2)
Quarter: 2022Q1

REPORT INFORMATION
  Report Type: Spontaneous
  Country: CZ (occurrence: CZ)
  Receive Date: 20220105
  Receipt Date: 20220111
  Transmission Date: 20220423
  Serious: Yes (Other)
  Sender: FDA-Public Use
  Company Number: CZ-002147023-NVSC2021CZ269177

PATIENT
  Sex: Female

DRUGS (4)
  1. VANCOMYCIN [Suspect]
     Active Substance: VANCOMYCIN
     Indication: Uveitis
     Dosage: 2 GRAM, QD(1 G, BID)
     Route: 031
     Dates: start: 20211118, end: 20211119
  2. BEOVU [Suspect]
     Active Substance: BROLUCIZUMAB-DBLL
     Indication: Product used for unknown indication
     Dosage: UNK
     Route: 065
     Dates: start: 20210406
  3. BEOVU [Suspect]
     Active Substance: BROLUCIZUMAB-DBLL
     Dosage: UNK
     Route: 065
     Dates: start: 20211012
  4. BEOVU [Suspect]
     Active Substance: BROLUCIZUMAB-DBLL
     Dosage: UNK
     Route: 065
     Dates: start: 20210623

REACTIONS (5)
  - Uveitis [Not Recovered/Not Resolved]
  - Visual acuity reduced [Recovering/Resolving]
  - Eye pain [Recovered/Resolved]
  - Drug hypersensitivity [Unknown]
  - Vitreous opacities [Recovering/Resolving]
